FAERS Safety Report 25813985 (Version 5)
Quarter: 2025Q4

REPORT INFORMATION
  Report Type: Other
  Country: US (occurrence: US)
  Receive Date: 20250917
  Receipt Date: 20251222
  Transmission Date: 20260117
  Serious: No
  Sender: TRAVERE THERAPEUTICS
  Company Number: US-TRAVERE-2025TVT01182

PATIENT
  Age: 53 Year
  Sex: Female

DRUGS (3)
  1. FILSPARI [Suspect]
     Active Substance: SPARSENTAN
     Indication: IgA nephropathy
     Route: 048
     Dates: start: 20250711
  2. FILSPARI [Suspect]
     Active Substance: SPARSENTAN
     Route: 048
     Dates: start: 20250726
  3. FILSPARI [Suspect]
     Active Substance: SPARSENTAN
     Dosage: CUTTING THE FILSPARI 400MG TABLETS IN HALF
     Route: 048
     Dates: start: 20250819

REACTIONS (10)
  - Dizziness [Unknown]
  - Nausea [None]
  - Headache [None]
  - Peripheral swelling [None]
  - Swelling face [None]
  - Back pain [Unknown]
  - Micturition frequency decreased [Unknown]
  - Product administration error [Unknown]
  - Flank pain [Recovering/Resolving]
  - Blood urine present [Recovering/Resolving]

NARRATIVE: CASE EVENT DATE: 20250711
